FAERS Safety Report 14313758 (Version 1)
Quarter: 2017Q4

REPORT INFORMATION
  Report Type: Spontaneous
  Country: PT (occurrence: PT)
  Receive Date: 20171221
  Receipt Date: 20171221
  Transmission Date: 20180321
  Serious: Yes (Hospitalization, Other)
  Sender: FDA-Public Use
  Company Number: PHHY2017PT191008

PATIENT
  Age: 78 Year
  Sex: Male

DRUGS (4)
  1. AZITHROMYCIN ANHYDROUS. [Suspect]
     Active Substance: AZITHROMYCIN ANHYDROUS
     Indication: PNEUMONIA PNEUMOCOCCAL
     Route: 065
  2. AMIODARONE [Suspect]
     Active Substance: AMIODARONE
     Indication: ATRIAL FIBRILLATION
     Dosage: 100 MG, THREE TIMES A WEEK
     Route: 065
  3. APIXABAN [Concomitant]
     Active Substance: APIXABAN
     Indication: ATRIAL FIBRILLATION
     Dosage: 5 MG, BID
     Route: 065
  4. APIXABAN [Concomitant]
     Active Substance: APIXABAN
     Indication: PLATELET AGGREGATION INHIBITION

REACTIONS (11)
  - Dyspnoea [Unknown]
  - Purulent discharge [Unknown]
  - Pyrexia [Unknown]
  - Drug ineffective [Recovered/Resolved]
  - Productive cough [Unknown]
  - Respiratory failure [Unknown]
  - Haemoptysis [Unknown]
  - Streptococcus test positive [Unknown]
  - Pneumonia pneumococcal [Unknown]
  - Catheter site haemorrhage [Unknown]
  - Pulmonary alveolar haemorrhage [Unknown]
